FAERS Safety Report 15971260 (Version 2)
Quarter: 2019Q1

REPORT INFORMATION
  Report Type: Spontaneous
  Country: AT (occurrence: AT)
  Receive Date: 20190215
  Receipt Date: 20190312
  Transmission Date: 20190418
  Serious: Yes (Life-Threatening, Hospitalization)
  Sender: FDA-Public Use
  Company Number: PHHY2019AT035601

PATIENT
  Age: 61 Year
  Sex: Female

DRUGS (3)
  1. VORICONAZOLE. [Suspect]
     Active Substance: VORICONAZOLE
     Indication: ASPERGILLUS INFECTION
     Dosage: 400 MG, UNK (2 X FOR A LONG TIME)
     Route: 042
     Dates: start: 20181212, end: 20190109
  2. AMPHOTERICIN B. [Suspect]
     Active Substance: AMPHOTERICIN B
     Indication: ASPERGILLUS INFECTION
     Dosage: 50 MG, QD (FOR A VERY LONG TIME)
     Route: 055
     Dates: start: 20181220, end: 20190114
  3. ECALTA [Suspect]
     Active Substance: ANIDULAFUNGIN
     Indication: ASPERGILLUS INFECTION
     Dosage: 100 MG, UNK (200 MG, 2 X)
     Route: 065
     Dates: start: 20180113, end: 20190124

REACTIONS (4)
  - Liver disorder [Recovered/Resolved]
  - Loss of consciousness [Recovered/Resolved]
  - Renal disorder [Recovering/Resolving]
  - Confusional state [Recovering/Resolving]
